FAERS Safety Report 6779420-6 (Version None)
Quarter: 2010Q2

REPORT INFORMATION
  Report Type: 
  Country: None (occurrence: None)
  Receive Date: 20100618
  Receipt Date: 20100518
  Transmission Date: 20101027
  Serious: No
  Sender: FDA-Public Use
  Company Number: US-BAYER-201024035NA

PATIENT
  Age: 25 Year
  Sex: Female
  Weight: 71 kg

DRUGS (1)
  1. ULTRAVIST (PHARMACY BULK) [Suspect]
     Indication: COMPUTERISED TOMOGRAM THORAX
     Dosage: TOTAL DAILY DOSE: 80 ML  UNIT DOSE: 500 ML
     Route: 042
     Dates: start: 20100518, end: 20100518

REACTIONS (3)
  - NASAL CONGESTION [None]
  - OCULAR HYPERAEMIA [None]
  - SNEEZING [None]
